FAERS Safety Report 6148990-3 (Version None)
Quarter: 2009Q2

REPORT INFORMATION
  Report Type: 
  Country: None (occurrence: None)
  Receive Date: 20090409
  Receipt Date: 20071022
  Transmission Date: 20091009
  Serious: Yes (Death, Hospitalization)
  Sender: FDA-Public Use
  Company Number: US-ASTRAZENECA-2007UW12512

PATIENT
  Age: 21196 Day
  Sex: Male
  Weight: 83.9 kg

DRUGS (18)
  1. SEROQUEL [Suspect]
     Indication: DEPRESSION
     Dosage: 25 TO 100 MG
     Route: 048
     Dates: start: 20060301, end: 20060901
  2. SEROQUEL [Suspect]
     Indication: POST-TRAUMATIC STRESS DISORDER
     Dosage: 25 TO 100 MG
     Route: 048
     Dates: start: 20060301, end: 20060901
  3. SEROQUEL [Suspect]
     Dosage: 25MG - 200MG
     Route: 048
     Dates: start: 20050411
  4. SEROQUEL [Suspect]
     Dosage: 25MG - 200MG
     Route: 048
     Dates: start: 20050411
  5. LASIX [Concomitant]
  6. GLUCOPHAGE [Concomitant]
  7. COREG [Concomitant]
  8. NATRECOR [Concomitant]
  9. LOPERAMIDE HCL [Concomitant]
  10. RESTORIL [Concomitant]
  11. LEXAPRO [Concomitant]
  12. VYTORIN [Concomitant]
  13. ATIVAN [Concomitant]
  14. ISORDIL [Concomitant]
  15. NITROGLYCERIN [Concomitant]
  16. KLOR-CON [Concomitant]
  17. ZESTRIL [Concomitant]
  18. LANOXIN [Concomitant]

REACTIONS (9)
  - ARTERIOSCLEROSIS [None]
  - CARDIAC FAILURE CONGESTIVE [None]
  - DIZZINESS [None]
  - DYSPNOEA [None]
  - FATIGUE [None]
  - HYPOKALAEMIA [None]
  - NAUSEA [None]
  - TYPE 2 DIABETES MELLITUS [None]
  - VISUAL IMPAIRMENT [None]
